FAERS Safety Report 8371270-2 (Version None)
Quarter: 2012Q2

REPORT INFORMATION
  Report Type: 
  Country: None (occurrence: None)
  Receive Date: 20120518
  Receipt Date: 20120509
  Transmission Date: 20120825
  Serious: Yes (Life-Threatening, Hospitalization, Other)
  Sender: FDA-Public Use
  Company Number: JP-VERTEX PHARMACEUTICALS INC.-AE-2012-006061

PATIENT
  Age: 64 Year
  Sex: Male

DRUGS (25)
  1. REBETOL [Concomitant]
     Indication: HEPATITIS C
     Route: 048
     Dates: start: 20120410, end: 20120412
  2. REBETOL [Concomitant]
     Route: 048
     Dates: start: 20120413, end: 20120416
  3. AMARYL [Concomitant]
     Route: 048
     Dates: end: 20120412
  4. LENDORMIN D [Concomitant]
     Route: 048
  5. URSO 250 [Concomitant]
     Route: 048
     Dates: start: 20120424
  6. JUVELA N [Concomitant]
     Route: 048
     Dates: start: 20120424
  7. ADALAT CC [Concomitant]
     Route: 048
     Dates: start: 20120417
  8. METFORMIN HCL [Concomitant]
     Route: 048
     Dates: end: 20120412
  9. ADALAT CC [Concomitant]
     Route: 048
     Dates: end: 20120412
  10. DOXAZOSIN MESYLATE [Concomitant]
     Route: 048
     Dates: end: 20120412
  11. TRICHLORMETHIAZIDE [Concomitant]
     Route: 048
     Dates: end: 20120412
  12. METHYLCOBAL [Concomitant]
     Route: 048
     Dates: start: 20120424
  13. DOXAZOSIN MESYLATE [Concomitant]
     Route: 048
     Dates: start: 20120424
  14. KINEDAK [Concomitant]
     Route: 048
     Dates: end: 20120412
  15. KINEDAK [Concomitant]
     Route: 048
     Dates: start: 20120424
  16. OLMESARTAN MEDOXOMIL [Concomitant]
     Route: 048
     Dates: end: 20120412
  17. TRICHLORMETHIAZIDE [Concomitant]
     Route: 048
     Dates: start: 20120424
  18. NESINA [Concomitant]
     Route: 048
     Dates: end: 20120412
  19. NESINA [Concomitant]
     Route: 048
     Dates: start: 20120424
  20. METFORMIN HCL [Concomitant]
     Route: 048
     Dates: start: 20120424
  21. TELAVIC (TELAPREVIR) [Suspect]
     Indication: HEPATITIS C
     Route: 048
     Dates: start: 20120410, end: 20120416
  22. PEG-INTRON [Concomitant]
     Indication: HEPATITIS C
     Route: 058
     Dates: start: 20120410, end: 20120416
  23. OLMESARTAN MEDOXOMIL [Concomitant]
     Route: 048
     Dates: start: 20120421
  24. AMARYL [Concomitant]
     Route: 048
     Dates: start: 20120424
  25. ROHYPNOL [Concomitant]
     Route: 048
     Dates: start: 20120418

REACTIONS (9)
  - VOMITING [None]
  - DECREASED APPETITE [None]
  - MALAISE [None]
  - NAUSEA [None]
  - GENERAL PHYSICAL HEALTH DETERIORATION [None]
  - RENAL IMPAIRMENT [None]
  - DIZZINESS [None]
  - ARTHRALGIA [None]
  - HEADACHE [None]
